FAERS Safety Report 8289817-3 (Version None)
Quarter: 2012Q2

REPORT INFORMATION
  Report Type: 
  Country: None (occurrence: None)
  Receive Date: 20120417
  Receipt Date: 20120411
  Transmission Date: 20120825
  Serious: Yes (Other)
  Sender: FDA-Public Use
  Company Number: US-PFIZER INC-2012090686

PATIENT
  Sex: Female

DRUGS (5)
  1. EFFEXOR XR [Suspect]
     Dosage: 150 MG, 2X/DAY
     Dates: start: 20050101
  2. PROVIGIL [Concomitant]
     Dosage: UNK
  3. ABILIFY [Concomitant]
     Dosage: UNK
  4. TRILEPTAL [Concomitant]
     Dosage: UNK
  5. RITALIN [Concomitant]
     Dosage: UNK

REACTIONS (1)
  - SUICIDAL IDEATION [None]
